FAERS Safety Report 9756004 (Version 1)
Quarter: 2013Q4

REPORT INFORMATION
  Report Type: Report from Study
  Country: US (occurrence: US)
  Receive Date: 20131213
  Receipt Date: 20131213
  Transmission Date: 20140711
  Serious: Yes (Hospitalization)
  Sender: FDA-Public Use
  Company Number: US-GLAXOSMITHKLINE-A1053296A

PATIENT
  Age: 78 Year
  Sex: Male
  Weight: 85.5 kg

DRUGS (5)
  1. PAZOPANIB [Suspect]
     Indication: LIPOSARCOMA
     Dosage: 800MG PER DAY
     Route: 048
     Dates: start: 20131014
  2. ALEVE [Concomitant]
  3. ZYRTEC [Concomitant]
  4. LIPITOR [Concomitant]
  5. TAMSULOSIN [Concomitant]

REACTIONS (1)
  - Transient ischaemic attack [Unknown]
